FAERS Safety Report 5124621-6 (Version None)
Quarter: 2006Q4

REPORT INFORMATION
  Report Type: 
  Country: None (occurrence: None)
  Receive Date: 20061006
  Receipt Date: 20061006
  Transmission Date: 20070319
  Serious: Yes (Hospitalization)
  Sender: FDA-Public Use
  Company Number: None

PATIENT
  Age: 16 Year
  Sex: Female
  Weight: 67.5 kg

DRUGS (1)
  1. TEGRETOL [Suspect]
     Indication: BIPOLAR DISORDER
     Dates: start: 20060812

REACTIONS (3)
  - ORAL INTAKE REDUCED [None]
  - PARAESTHESIA [None]
  - STEVENS-JOHNSON SYNDROME [None]
